FAERS Safety Report 21502811 (Version 5)
Quarter: 2023Q2

REPORT INFORMATION
  Report Type: Spontaneous
  Country: US (occurrence: US)
  Receive Date: 20221025
  Receipt Date: 20230530
  Transmission Date: 20230722
  Serious: Yes (Other)
  Sender: FDA-Public Use
  Company Number: US-BRISTOL-MYERS SQUIBB COMPANY-2022-123607

PATIENT
  Age: 20 Year
  Sex: Male

DRUGS (10)
  1. THALOMID [Suspect]
     Active Substance: THALIDOMIDE
     Indication: Medulloblastoma recurrent
     Route: 048
     Dates: start: 20221026
  2. THALOMID [Suspect]
     Active Substance: THALIDOMIDE
     Route: 048
     Dates: start: 20221026
  3. CELECOXIB [Concomitant]
     Active Substance: CELECOXIB
     Dosage: 10MG TABLETS
  4. DEXAMETHASONE [Concomitant]
     Active Substance: DEXAMETHASONE
     Dosage: 4 MG TABLETS
  5. ETOPOSIDE [Concomitant]
     Active Substance: ETOPOSIDE
     Dosage: 100MG/5ML INJ
  6. FAMOTIDINE [Concomitant]
     Active Substance: FAMOTIDINE
     Dosage: 20 MG TABLETS
  7. FENOFIBRATE [Concomitant]
     Active Substance: FENOFIBRATE
     Dosage: 120 MG TABLETS
  8. IBUPROFEN [Concomitant]
     Active Substance: IBUPROFEN
     Dosage: 200 MG TABLETS
  9. ONDANSETRON [Concomitant]
     Active Substance: ONDANSETRON
     Dosage: 4 MG TABLETS
  10. TYLENOL [Concomitant]
     Active Substance: ACETAMINOPHEN
     Dosage: 500MG/ES

REACTIONS (7)
  - Off label use [Unknown]
  - Neuralgia [Recovered/Resolved]
  - Hypoaesthesia [Recovered/Resolved]
  - Paraesthesia [Recovered/Resolved]
  - Diplopia [Unknown]
  - Fatigue [Unknown]
  - Malignant neoplasm progression [Unknown]

NARRATIVE: CASE EVENT DATE: 20221031
